FAERS Safety Report 25450860 (Version 1)
Quarter: 2025Q2

REPORT INFORMATION
  Report Type: Spontaneous
  Country: US (occurrence: None)
  Receive Date: 20250618
  Receipt Date: 20250618
  Transmission Date: 20250717
  Serious: Yes (Hospitalization, Disabling, Other)
  Sender: FDA-CTU
  Company Number: None

PATIENT
  Age: 61 Year
  Sex: Female
  Weight: 62.6 kg

DRUGS (8)
  1. BOTOX [Suspect]
     Active Substance: ONABOTULINUMTOXINA
     Indication: Product used for unknown indication
     Dates: start: 20250102, end: 20250102
  2. Adivan as needed [Concomitant]
  3. Protonox [Concomitant]
  4. PEPCID [Concomitant]
     Active Substance: FAMOTIDINE
  5. VITAMIN B [Concomitant]
     Active Substance: VITAMIN B
  6. IRON [Concomitant]
     Active Substance: IRON
  7. VITAMIN C [Concomitant]
     Active Substance: ASCORBIC ACID
  8. VITAMIN D [Concomitant]
     Active Substance: VITAMIN D NOS

REACTIONS (2)
  - Illness [None]
  - Adverse event [None]

NARRATIVE: CASE EVENT DATE: 20250102
